FAERS Safety Report 8486297 (Version 4)
Quarter: 2013Q1

REPORT INFORMATION
  Report Type: Report from Study
  Country: JP (occurrence: JP)
  Receive Date: 20120402
  Receipt Date: 20130115
  Transmission Date: 20140127
  Serious: Yes (Death, Other)
  Sender: FDA-Public Use
  Company Number: JP-JNJFOC-20120312324

PATIENT
  Age: 73 Year
  Sex: Male
  Weight: 48 kg

DRUGS (22)
  1. ONEDURO [Suspect]
     Indication: CANCER PAIN
     Route: 062
     Dates: start: 20111109
  2. FENTANYL CITRATE [Concomitant]
     Indication: CANCER PAIN
     Dosage: 1 AMPULE
     Route: 042
     Dates: start: 20111109, end: 20111109
  3. FENTANYL CITRATE [Concomitant]
     Indication: CANCER PAIN
     Route: 042
     Dates: start: 20111111, end: 20111112
  4. FENTANYL CITRATE [Concomitant]
     Indication: CANCER PAIN
     Route: 042
     Dates: start: 20111116, end: 20111116
  5. FENTANYL CITRATE [Concomitant]
     Indication: CANCER PAIN
     Route: 042
     Dates: start: 20111118, end: 20111118
  6. FENTANYL CITRATE [Concomitant]
     Indication: CANCER PAIN
     Route: 042
     Dates: start: 20111120, end: 20111120
  7. MYSLEE [Concomitant]
     Indication: INSOMNIA
     Route: 048
  8. FOLIAMIN [Concomitant]
     Indication: PROPHYLAXIS
     Route: 048
  9. LOXONIN [Concomitant]
     Indication: CANCER PAIN
     Route: 048
  10. MUCOSTA [Concomitant]
     Indication: PROPHYLAXIS
     Route: 048
  11. CHLORPHENIRAMINE MALEATE [Concomitant]
     Indication: PROPHYLAXIS
     Route: 048
  12. MAGNESIUM OXIDE [Concomitant]
     Indication: PROPHYLAXIS
     Route: 048
     Dates: end: 20111115
  13. SENNOSIDE [Concomitant]
     Indication: PROPHYLAXIS
     Route: 048
  14. NAUZELIN [Concomitant]
     Indication: VOMITING
     Route: 048
  15. NAUZELIN [Concomitant]
     Indication: NAUSEA
     Route: 048
  16. LAXOBERON [Concomitant]
     Indication: PROPHYLAXIS
     Dosage: 15 DROPS
     Route: 065
  17. SEROQUEL [Concomitant]
     Indication: INSOMNIA
     Route: 048
     Dates: start: 20111116
  18. MAGMITT [Concomitant]
     Indication: PROPHYLAXIS
     Route: 048
     Dates: start: 20111129
  19. MAGMITT [Concomitant]
     Indication: PROPHYLAXIS
     Route: 048
     Dates: start: 20111116, end: 20111128
  20. RINDERON [Concomitant]
     Indication: CACHEXIA
     Route: 048
     Dates: start: 20120127
  21. RINDERON [Concomitant]
     Indication: CACHEXIA
     Route: 048
     Dates: start: 20111230, end: 20120127
  22. RINDERON [Concomitant]
     Indication: CACHEXIA
     Route: 048
     Dates: start: 20111213, end: 20111230

REACTIONS (5)
  - Lung neoplasm malignant [Fatal]
  - Weight decreased [Not Recovered/Not Resolved]
  - Malaise [Not Recovered/Not Resolved]
  - Insomnia [Not Recovered/Not Resolved]
  - Cachexia [Not Recovered/Not Resolved]
